FAERS Safety Report 9890727 (Version 1)
Quarter: 2014Q1

REPORT INFORMATION
  Report Type: Spontaneous
  Country: US (occurrence: US)
  Receive Date: 20140212
  Receipt Date: 20140212
  Transmission Date: 20141002
  Serious: No
  Sender: FDA-Public Use
  Company Number: US-009507513-1402USA005390

PATIENT
  Age: 27 Year
  Sex: Female
  Weight: 104.31 kg

DRUGS (2)
  1. IMPLANON [Suspect]
     Dosage: 1 ROD EVERY 3 YEARS
     Route: 059
     Dates: start: 20120724
  2. IMPLANON [Suspect]
     Dosage: 1 ROD EVERY 3 YEARS
     Route: 059
     Dates: end: 2012

REACTIONS (1)
  - Menorrhagia [Unknown]
